FAERS Safety Report 9121205 (Version 2)
Quarter: 2013Q1

REPORT INFORMATION
  Report Type: Spontaneous
  Country: ID (occurrence: ID)
  Receive Date: 20130225
  Receipt Date: 20130311
  Transmission Date: 20140127
  Serious: Yes (Death)
  Sender: FDA-Public Use
  Company Number: ID-ASTRAZENECA-2013SE11721

PATIENT
  Age: 9 Month
  Sex: Female
  Weight: 7.3 kg

DRUGS (2)
  1. SYNAGIS [Suspect]
     Indication: ANTIVIRAL PROPHYLAXIS
     Route: 030
     Dates: start: 20130205, end: 20130205
  2. SYNAGIS [Suspect]
     Indication: PNEUMONIA
     Route: 030
     Dates: start: 20130205, end: 20130205

REACTIONS (1)
  - Pneumonia [Fatal]
